FAERS Safety Report 5400629-8 (Version None)
Quarter: 2007Q3

REPORT INFORMATION
  Report Type: 
  Country: None (occurrence: None)
  Receive Date: 20070730
  Receipt Date: 20070719
  Transmission Date: 20080115
  Serious: Yes (Death, Life-Threatening, Hospitalization)
  Sender: FDA-Public Use
  Company Number: HQWYE417830MAY07

PATIENT
  Sex: Male
  Weight: 77 kg

DRUGS (6)
  1. MITOXANTRONE HCL [Suspect]
     Indication: ACUTE MYELOID LEUKAEMIA
     Dosage: ACTUAL DOSE GIVEN 12.6/CUMULATIVE DOSE GIVEN 37.8
     Dates: start: 20060612, end: 20060616
  2. CASPOFUNGIN ACETATE [Concomitant]
     Dosage: UNKNOWN
     Route: 042
     Dates: start: 20060624, end: 20060725
  3. GEMTUZUMAB OZOGAMICIN [Suspect]
     Indication: ACUTE MYELOID LEUKAEMIA
     Dates: start: 20060529, end: 20060529
  4. GLAZIDIM [Concomitant]
     Route: 042
     Dates: start: 20060531, end: 20060623
  5. ETOPOSIDE [Suspect]
     Indication: ACUTE MYELOID LEUKAEMIA
     Dosage: ACTUAL DOSE GIVEN 180/CUMULATIVE DOSE GIVEN 540
     Dates: start: 20060612, end: 20060614
  6. CYTARABINE [Suspect]
     Indication: ACUTE MYELOID LEUKAEMIA
     Dosage: ACTUAL DOSE GIVEN 180/CUMULATIVE DOSE GIVEN 1260 MG
     Dates: start: 20060612, end: 20060618

REACTIONS (2)
  - HEPATITIS TOXIC [None]
  - PNEUMONITIS [None]
